FAERS Safety Report 16149966 (Version 1)
Quarter: 2019Q2

REPORT INFORMATION
  Report Type: Spontaneous
  Country: DE (occurrence: DE)
  Receive Date: 20190402
  Receipt Date: 20190402
  Transmission Date: 20190711
  Serious: Yes (Other)
  Sender: FDA-Public Use
  Company Number: PHHY2019DE074966

PATIENT
  Sex: Female
  Weight: 102 kg

DRUGS (1)
  1. LEVOFLOXACIN HEXAL [Suspect]
     Active Substance: LEVOFLOXACIN
     Indication: PRODUCT USED FOR UNKNOWN INDICATION
     Dosage: 1 DF, QD
     Route: 065
     Dates: start: 20190221, end: 20190227

REACTIONS (6)
  - Arrhythmia [Unknown]
  - Tremor [Unknown]
  - Anxiety [Unknown]
  - Dizziness [Unknown]
  - Muscular weakness [Unknown]
  - Depressed mood [Unknown]

NARRATIVE: CASE EVENT DATE: 20190222
